FAERS Safety Report 13439870 (Version 1)
Quarter: 2017Q2

REPORT INFORMATION
  Report Type: Spontaneous
  Country: IT (occurrence: IT)
  Receive Date: 20170413
  Receipt Date: 20170413
  Transmission Date: 20170830
  Serious: Yes (Other)
  Sender: FDA-Public Use
  Company Number: IT-ROCHE-1919554

PATIENT
  Age: 42 Year
  Sex: Male

DRUGS (1)
  1. CEFTRIAXONE. [Suspect]
     Active Substance: CEFTRIAXONE
     Indication: EPIDIDYMITIS
     Route: 030

REACTIONS (3)
  - Tremor [Unknown]
  - Loss of consciousness [Unknown]
  - Syncope [Unknown]

NARRATIVE: CASE EVENT DATE: 20160811
